FAERS Safety Report 24610954 (Version 1)
Quarter: 2024Q4

REPORT INFORMATION
  Report Type: Spontaneous
  Country: CA (occurrence: CA)
  Receive Date: 20241112
  Receipt Date: 20241112
  Transmission Date: 20250115
  Serious: Yes (Death, Life-Threatening, Hospitalization, Disabling, Congenital Anomaly, Other)
  Sender: Haleon PLC
  Company Number: CA-002147023-NVSC2024CA146133

PATIENT
  Age: 40 Year
  Sex: Female

DRUGS (269)
  1. VOLTAREN [Suspect]
     Active Substance: DICLOFENAC SODIUM
     Indication: Product used for unknown indication
     Route: 058
  2. ALENDRONATE SODIUM\CHOLECALCIFEROL [Suspect]
     Active Substance: ALENDRONATE SODIUM\CHOLECALCIFEROL
     Indication: Rheumatoid arthritis
     Route: 065
  3. INFLIXIMAB [Suspect]
     Active Substance: INFLIXIMAB
     Indication: Rheumatoid arthritis
     Route: 042
  4. INFLIXIMAB [Suspect]
     Active Substance: INFLIXIMAB
     Route: 042
  5. INFLIXIMAB [Suspect]
     Active Substance: INFLIXIMAB
     Route: 042
  6. INFLIXIMAB [Suspect]
     Active Substance: INFLIXIMAB
     Route: 042
  7. INFLIXIMAB [Suspect]
     Active Substance: INFLIXIMAB
     Route: 058
  8. CETIRIZINE HYDROCHLORIDE\PSEUDOEPHEDRINE HYDROCHLORIDE [Suspect]
     Active Substance: CETIRIZINE HYDROCHLORIDE\PSEUDOEPHEDRINE HYDROCHLORIDE
     Indication: Rheumatoid arthritis
     Route: 065
  9. CETIRIZINE HYDROCHLORIDE\PSEUDOEPHEDRINE HYDROCHLORIDE [Suspect]
     Active Substance: CETIRIZINE HYDROCHLORIDE\PSEUDOEPHEDRINE HYDROCHLORIDE
     Route: 065
  10. CETIRIZINE HYDROCHLORIDE\PSEUDOEPHEDRINE HYDROCHLORIDE [Suspect]
     Active Substance: CETIRIZINE HYDROCHLORIDE\PSEUDOEPHEDRINE HYDROCHLORIDE
     Route: 065
  11. CETIRIZINE HYDROCHLORIDE\PSEUDOEPHEDRINE HYDROCHLORIDE [Suspect]
     Active Substance: CETIRIZINE HYDROCHLORIDE\PSEUDOEPHEDRINE HYDROCHLORIDE
     Route: 065
  12. CETIRIZINE HYDROCHLORIDE\PSEUDOEPHEDRINE HYDROCHLORIDE [Suspect]
     Active Substance: CETIRIZINE HYDROCHLORIDE\PSEUDOEPHEDRINE HYDROCHLORIDE
     Route: 042
  13. REMICADE [Suspect]
     Active Substance: INFLIXIMAB
     Indication: Rheumatoid arthritis
     Dosage: POWDER FOR SOLUTION FOR INJECTION/INFUSION
     Route: 042
  14. NUCALA [Suspect]
     Active Substance: MEPOLIZUMAB
     Indication: Product used for unknown indication
     Route: 065
  15. NUCALA [Suspect]
     Active Substance: MEPOLIZUMAB
     Route: 065
  16. ASCORBIC ACID [Suspect]
     Active Substance: ASCORBIC ACID
     Indication: Product used for unknown indication
     Route: 065
  17. CALCIUM CITRATE [Suspect]
     Active Substance: CALCIUM CITRATE
     Indication: Product used for unknown indication
     Route: 065
  18. HYDROXYCHLOROQUINE [Suspect]
     Active Substance: HYDROXYCHLOROQUINE
     Indication: Rheumatoid arthritis
     Route: 048
  19. HYDROXYCHLOROQUINE [Suspect]
     Active Substance: HYDROXYCHLOROQUINE
     Route: 048
  20. HYDROXYCHLOROQUINE [Suspect]
     Active Substance: HYDROXYCHLOROQUINE
     Route: 058
  21. ERGOCALCIFEROL [Suspect]
     Active Substance: ERGOCALCIFEROL
     Indication: Product used for unknown indication
     Route: 065
  22. ERGOCALCIFEROL [Suspect]
     Active Substance: ERGOCALCIFEROL
     Route: 065
  23. NAPROXEN SODIUM [Suspect]
     Active Substance: NAPROXEN SODIUM
     Indication: Rheumatoid arthritis
     Route: 065
  24. NAPROXEN SODIUM [Suspect]
     Active Substance: NAPROXEN SODIUM
     Route: 065
  25. CETIRIZINE HYDROCHLORIDE [Suspect]
     Active Substance: CETIRIZINE HYDROCHLORIDE
     Indication: Rheumatoid arthritis
     Route: 048
  26. CETIRIZINE HYDROCHLORIDE [Suspect]
     Active Substance: CETIRIZINE HYDROCHLORIDE
     Route: 065
  27. CETIRIZINE HYDROCHLORIDE [Suspect]
     Active Substance: CETIRIZINE HYDROCHLORIDE
     Route: 048
  28. CETIRIZINE HYDROCHLORIDE [Suspect]
     Active Substance: CETIRIZINE HYDROCHLORIDE
     Route: 065
  29. CETIRIZINE HYDROCHLORIDE [Suspect]
     Active Substance: CETIRIZINE HYDROCHLORIDE
     Route: 065
  30. CETIRIZINE HYDROCHLORIDE [Suspect]
     Active Substance: CETIRIZINE HYDROCHLORIDE
     Route: 065
  31. CETIRIZINE HYDROCHLORIDE [Suspect]
     Active Substance: CETIRIZINE HYDROCHLORIDE
     Route: 065
  32. FOSAMAX [Suspect]
     Active Substance: ALENDRONATE SODIUM
     Indication: Rheumatoid arthritis
     Route: 016
  33. FOSAMAX [Suspect]
     Active Substance: ALENDRONATE SODIUM
     Route: 048
  34. FOSAMAX [Suspect]
     Active Substance: ALENDRONATE SODIUM
     Route: 058
  35. METHOTREXATE [Suspect]
     Active Substance: METHOTREXATE
     Indication: Rheumatoid arthritis
     Route: 058
  36. METHOTREXATE [Suspect]
     Active Substance: METHOTREXATE
     Route: 048
  37. METHOTREXATE [Suspect]
     Active Substance: METHOTREXATE
     Route: 058
  38. METHOTREXATE [Suspect]
     Active Substance: METHOTREXATE
     Route: 048
  39. METHOTREXATE [Suspect]
     Active Substance: METHOTREXATE
     Route: 048
  40. BOTULINUM TOXIN TYPE A [Suspect]
     Active Substance: BOTULINUM TOXIN TYPE A
     Indication: Product used for unknown indication
     Dosage: UNK (POWDER FOR SOLUTION)
     Route: 065
  41. GOLD [Suspect]
     Active Substance: GOLD
     Indication: Product used for unknown indication
     Route: 065
  42. ACTEMRA [Suspect]
     Active Substance: TOCILIZUMAB
     Indication: Rheumatoid arthritis
     Route: 042
  43. ACTEMRA [Suspect]
     Active Substance: TOCILIZUMAB
     Route: 042
  44. ACTEMRA [Suspect]
     Active Substance: TOCILIZUMAB
     Route: 058
  45. ACTEMRA [Suspect]
     Active Substance: TOCILIZUMAB
     Route: 042
  46. ACTEMRA [Suspect]
     Active Substance: TOCILIZUMAB
     Route: 042
  47. ACTEMRA [Suspect]
     Active Substance: TOCILIZUMAB
     Route: 058
  48. ACTEMRA [Suspect]
     Active Substance: TOCILIZUMAB
     Dosage: UNK (TOPICAL)
     Route: 065
  49. ACTEMRA [Suspect]
     Active Substance: TOCILIZUMAB
     Route: 065
  50. ACTEMRA [Suspect]
     Active Substance: TOCILIZUMAB
     Route: 058
  51. ACTEMRA [Suspect]
     Active Substance: TOCILIZUMAB
     Route: 058
  52. ACTEMRA [Suspect]
     Active Substance: TOCILIZUMAB
     Route: 042
  53. ACTEMRA [Suspect]
     Active Substance: TOCILIZUMAB
     Route: 042
  54. ACTEMRA [Suspect]
     Active Substance: TOCILIZUMAB
     Route: 065
  55. ACTEMRA [Suspect]
     Active Substance: TOCILIZUMAB
     Route: 042
  56. MAGNESIUM CITRATE [Suspect]
     Active Substance: MAGNESIUM CITRATE
     Indication: Product used for unknown indication
     Route: 065
  57. DOMPERIDONE MALEATE [Suspect]
     Active Substance: DOMPERIDONE MALEATE
     Indication: Product used for unknown indication
     Route: 065
  58. DOMPERIDONE MALEATE [Suspect]
     Active Substance: DOMPERIDONE MALEATE
     Route: 065
  59. COSENTYX [Suspect]
     Active Substance: SECUKINUMAB
     Indication: Psoriatic arthropathy
     Route: 065
  60. ALENDRONIC ACID [Suspect]
     Active Substance: ALENDRONIC ACID
     Indication: Rheumatoid arthritis
     Route: 065
  61. ALENDRONIC ACID [Suspect]
     Active Substance: ALENDRONIC ACID
     Route: 048
  62. SIRUKUMAB [Suspect]
     Active Substance: SIRUKUMAB
     Indication: Product used for unknown indication
     Route: 065
  63. SIRUKUMAB [Suspect]
     Active Substance: SIRUKUMAB
     Route: 065
  64. SULFASALAZINE [Suspect]
     Active Substance: SULFASALAZINE
     Indication: Rheumatoid arthritis
     Route: 065
  65. SULFASALAZINE [Suspect]
     Active Substance: SULFASALAZINE
     Route: 058
  66. SULFASALAZINE [Suspect]
     Active Substance: SULFASALAZINE
     Route: 048
  67. SULFASALAZINE [Suspect]
     Active Substance: SULFASALAZINE
     Route: 048
  68. SULFASALAZINE [Suspect]
     Active Substance: SULFASALAZINE
     Route: 058
  69. SULFASALAZINE [Suspect]
     Active Substance: SULFASALAZINE
     Route: 048
  70. SULFASALAZINE [Suspect]
     Active Substance: SULFASALAZINE
     Route: 048
  71. SULFASALAZINE [Suspect]
     Active Substance: SULFASALAZINE
     Route: 065
  72. SULFASALAZINE [Suspect]
     Active Substance: SULFASALAZINE
     Route: 048
  73. SULFASALAZINE [Suspect]
     Active Substance: SULFASALAZINE
     Route: 065
  74. SULFASALAZINE [Suspect]
     Active Substance: SULFASALAZINE
     Route: 048
  75. SULFASALAZINE [Suspect]
     Active Substance: SULFASALAZINE
     Route: 065
  76. SULFASALAZINE [Suspect]
     Active Substance: SULFASALAZINE
     Route: 065
  77. SULFASALAZINE [Suspect]
     Active Substance: SULFASALAZINE
     Route: 065
  78. SULFASALAZINE [Suspect]
     Active Substance: SULFASALAZINE
     Route: 048
  79. SULFASALAZINE [Suspect]
     Active Substance: SULFASALAZINE
     Route: 065
  80. SULFASALAZINE [Suspect]
     Active Substance: SULFASALAZINE
     Route: 065
  81. PANADOL [Suspect]
     Active Substance: ACETAMINOPHEN
     Indication: Rheumatoid arthritis
     Dosage: UNK (ARTHRITIS PAIN)
     Route: 065
  82. PANADOL [Suspect]
     Active Substance: ACETAMINOPHEN
     Dosage: UNK
     Route: 065
  83. CANDESARTAN [Suspect]
     Active Substance: CANDESARTAN
     Indication: Migraine
     Route: 048
  84. PREDNISONE [Suspect]
     Active Substance: PREDNISONE
     Indication: Rheumatoid arthritis
     Route: 048
  85. PREDNISONE [Suspect]
     Active Substance: PREDNISONE
     Route: 048
  86. PREDNISONE [Suspect]
     Active Substance: PREDNISONE
     Route: 048
  87. PREDNISONE [Suspect]
     Active Substance: PREDNISONE
     Route: 048
  88. PREDNISONE [Suspect]
     Active Substance: PREDNISONE
     Route: 065
  89. PREDNISONE [Suspect]
     Active Substance: PREDNISONE
     Route: 048
  90. PREDNISONE [Suspect]
     Active Substance: PREDNISONE
     Route: 065
  91. PREDNISONE [Suspect]
     Active Substance: PREDNISONE
     Route: 048
  92. PREDNISONE [Suspect]
     Active Substance: PREDNISONE
     Route: 048
  93. PREDNISONE [Suspect]
     Active Substance: PREDNISONE
     Route: 048
  94. GOLD SODIUM THIOMALATE [Suspect]
     Active Substance: GOLD SODIUM THIOMALATE
     Indication: Rheumatoid arthritis
     Route: 048
  95. GOLD SODIUM THIOMALATE [Suspect]
     Active Substance: GOLD SODIUM THIOMALATE
     Route: 065
  96. DICLOFENAC [Suspect]
     Active Substance: DICLOFENAC
     Indication: Product used for unknown indication
     Route: 065
  97. DICLOFENAC [Suspect]
     Active Substance: DICLOFENAC
     Route: 065
  98. DICLOFENAC DIETHYLAMINE [Suspect]
     Active Substance: DICLOFENAC DIETHYLAMINE
     Indication: Product used for unknown indication
     Route: 058
  99. DICLOFENAC DIETHYLAMINE [Suspect]
     Active Substance: DICLOFENAC DIETHYLAMINE
     Route: 065
  100. OXYCODONE [Suspect]
     Active Substance: OXYCODONE
     Indication: Product used for unknown indication
     Route: 065
  101. RAMIPRIL [Suspect]
     Active Substance: RAMIPRIL
     Indication: Rheumatoid arthritis
     Route: 042
  102. RAMIPRIL [Suspect]
     Active Substance: RAMIPRIL
     Route: 016
  103. RAMIPRIL [Suspect]
     Active Substance: RAMIPRIL
     Route: 042
  104. CALCIUM GLUBIONATE [Suspect]
     Active Substance: CALCIUM GLUBIONATE
     Indication: Product used for unknown indication
     Route: 016
  105. CALCIUM GLUBIONATE [Suspect]
     Active Substance: CALCIUM GLUBIONATE
     Route: 016
  106. FLUMETHASONE PIVALATE [Suspect]
     Active Substance: FLUMETHASONE PIVALATE
     Indication: Product used for unknown indication
     Route: 003
  107. FLUMETHASONE PIVALATE [Suspect]
     Active Substance: FLUMETHASONE PIVALATE
     Route: 065
  108. ACETAMINOPHEN\CODEINE PHOSPHATE [Suspect]
     Active Substance: ACETAMINOPHEN\CODEINE PHOSPHATE
     Indication: Product used for unknown indication
     Route: 065
  109. TUMS ULTRA [Suspect]
     Active Substance: CALCIUM CARBONATE
     Indication: Product used for unknown indication
     Route: 065
  110. CORTISONE ACETATE [Suspect]
     Active Substance: CORTISONE ACETATE
     Indication: Rheumatoid arthritis
     Route: 048
  111. CORTISONE ACETATE [Suspect]
     Active Substance: CORTISONE ACETATE
     Dosage: UNK (TOPICAL)
     Route: 065
  112. CORTISONE ACETATE [Suspect]
     Active Substance: CORTISONE ACETATE
     Route: 048
  113. CORTISONE ACETATE [Suspect]
     Active Substance: CORTISONE ACETATE
     Route: 048
  114. PHTHALYLSULFATHIAZOLE [Suspect]
     Active Substance: PHTHALYLSULFATHIAZOLE
     Indication: Rheumatoid arthritis
     Route: 048
  115. PHTHALYLSULFATHIAZOLE [Suspect]
     Active Substance: PHTHALYLSULFATHIAZOLE
     Route: 048
  116. PHTHALYLSULFATHIAZOLE [Suspect]
     Active Substance: PHTHALYLSULFATHIAZOLE
     Route: 058
  117. PHTHALYLSULFATHIAZOLE [Suspect]
     Active Substance: PHTHALYLSULFATHIAZOLE
     Route: 048
  118. PHTHALYLSULFATHIAZOLE [Suspect]
     Active Substance: PHTHALYLSULFATHIAZOLE
     Route: 065
  119. PHTHALYLSULFATHIAZOLE [Suspect]
     Active Substance: PHTHALYLSULFATHIAZOLE
     Route: 048
  120. ORENCIA [Suspect]
     Active Substance: ABATACEPT
     Indication: Rheumatoid arthritis
     Route: 065
  121. ORENCIA [Suspect]
     Active Substance: ABATACEPT
     Route: 042
  122. ORENCIA [Suspect]
     Active Substance: ABATACEPT
     Route: 058
  123. ORENCIA [Suspect]
     Active Substance: ABATACEPT
     Route: 042
  124. ORENCIA [Suspect]
     Active Substance: ABATACEPT
     Route: 042
  125. ORENCIA [Suspect]
     Active Substance: ABATACEPT
     Route: 042
  126. TRIAMCINOLONE ACETONIDE [Suspect]
     Active Substance: TRIAMCINOLONE ACETONIDE
     Indication: Rheumatoid arthritis
     Route: 014
  127. SIMPONI [Suspect]
     Active Substance: GOLIMUMAB
     Indication: Rheumatoid arthritis
     Route: 058
  128. SIMPONI [Suspect]
     Active Substance: GOLIMUMAB
     Indication: Prostatic specific antigen
     Route: 065
  129. SIMPONI [Suspect]
     Active Substance: GOLIMUMAB
     Route: 058
  130. SIMPONI [Suspect]
     Active Substance: GOLIMUMAB
     Route: 065
  131. SIMPONI [Suspect]
     Active Substance: GOLIMUMAB
     Route: 058
  132. CALCIUM ASCORBATE [Suspect]
     Active Substance: CALCIUM ASCORBATE
     Indication: Product used for unknown indication
     Route: 065
  133. CALCIUM ASCORBATE [Suspect]
     Active Substance: CALCIUM ASCORBATE
     Route: 065
  134. PHENYLEPHRINE HYDROCHLORIDE [Suspect]
     Active Substance: PHENYLEPHRINE HYDROCHLORIDE
     Indication: Rheumatoid arthritis
     Route: 065
  135. TRAMADOL HYDROCHLORIDE [Suspect]
     Active Substance: TRAMADOL HYDROCHLORIDE
     Indication: Product used for unknown indication
     Route: 065
  136. HAIR KERATIN AMINO ACIDS GOLD COMPLEX [Suspect]
     Active Substance: HAIR KERATIN AMINO ACIDS GOLD COMPLEX
     Indication: Product used for unknown indication
     Route: 065
  137. DICLOFENAC [Suspect]
     Active Substance: DICLOFENAC
     Indication: Product used for unknown indication
     Route: 065
  138. CHLORHEXIDINE GLUCONATE APPLICATOR [Suspect]
     Active Substance: CHLORHEXIDINE GLUCONATE\ISOPROPYL ALCOHOL
     Indication: Product used for unknown indication
     Dosage: UNK (TOPICAL)
     Route: 061
  139. CHLORHEXIDINE GLUCONATE APPLICATOR [Suspect]
     Active Substance: CHLORHEXIDINE GLUCONATE\ISOPROPYL ALCOHOL
     Dosage: UNK (TOPICAL)
     Route: 061
  140. ATOMOXETINE [Suspect]
     Active Substance: ATOMOXETINE HYDROCHLORIDE
     Indication: Migraine
     Route: 065
  141. ATOMOXETINE [Suspect]
     Active Substance: ATOMOXETINE HYDROCHLORIDE
     Route: 065
  142. ATOMOXETINE [Suspect]
     Active Substance: ATOMOXETINE HYDROCHLORIDE
     Route: 065
  143. CELEBREX [Suspect]
     Active Substance: CELECOXIB
     Indication: Product used for unknown indication
     Route: 048
  144. CELEBREX [Suspect]
     Active Substance: CELECOXIB
     Route: 048
  145. CELEBREX [Suspect]
     Active Substance: CELECOXIB
     Route: 048
  146. CELEBREX [Suspect]
     Active Substance: CELECOXIB
     Route: 048
  147. SULFAMETHOXAZOLE AND TRIMETHOPRIM [Suspect]
     Active Substance: SULFAMETHOXAZOLE\TRIMETHOPRIM
     Indication: Product used for unknown indication
     Route: 065
  148. CALTRATE WITH VITAMIN D [Suspect]
     Active Substance: CALCIUM CARBONATE\CHOLECALCIFEROL
     Indication: Product used for unknown indication
     Route: 065
  149. CIMZIA [Suspect]
     Active Substance: CERTOLIZUMAB PEGOL
     Indication: Rheumatoid arthritis
     Route: 058
  150. CIMZIA [Suspect]
     Active Substance: CERTOLIZUMAB PEGOL
     Route: 058
  151. CIMZIA [Suspect]
     Active Substance: CERTOLIZUMAB PEGOL
     Route: 058
  152. CIMZIA [Suspect]
     Active Substance: CERTOLIZUMAB PEGOL
     Route: 058
  153. CIMZIA [Suspect]
     Active Substance: CERTOLIZUMAB PEGOL
     Route: 058
  154. METHYLPREDNISOLONE [Suspect]
     Active Substance: METHYLPREDNISOLONE
     Indication: Product used for unknown indication
     Route: 065
  155. LAMICTAL [Suspect]
     Active Substance: LAMOTRIGINE
     Indication: Product used for unknown indication
     Route: 048
  156. LAMICTAL [Suspect]
     Active Substance: LAMOTRIGINE
     Route: 048
  157. LAMICTAL [Suspect]
     Active Substance: LAMOTRIGINE
     Route: 048
  158. HUMIRA [Suspect]
     Active Substance: ADALIMUMAB
     Indication: Rheumatoid arthritis
     Route: 058
  159. HUMIRA [Suspect]
     Active Substance: ADALIMUMAB
     Route: 057
  160. HUMIRA [Suspect]
     Active Substance: ADALIMUMAB
     Route: 058
  161. RIBOFLAVIN [Suspect]
     Active Substance: RIBOFLAVIN
     Indication: Product used for unknown indication
     Route: 065
  162. RIBOFLAVIN [Suspect]
     Active Substance: RIBOFLAVIN
     Route: 065
  163. ISOPROPYL ALCOHOL [Suspect]
     Active Substance: ISOPROPYL ALCOHOL
     Indication: Product used for unknown indication
     Dosage: UNK (TOPICAL), LIQUID
     Route: 065
  164. ISOPROPYL ALCOHOL [Suspect]
     Active Substance: ISOPROPYL ALCOHOL
     Dosage: UNK (TOPICAL), LIQUID
     Route: 065
  165. MINOCYCLINE HYDROCHLORIDE [Suspect]
     Active Substance: MINOCYCLINE HYDROCHLORIDE
     Indication: Rheumatoid arthritis
     Route: 065
  166. MINOCYCLINE HYDROCHLORIDE [Suspect]
     Active Substance: MINOCYCLINE HYDROCHLORIDE
     Route: 065
  167. ADALIMUMAB [Suspect]
     Active Substance: ADALIMUMAB
     Indication: Rheumatoid arthritis
     Route: 058
  168. ADALIMUMAB [Suspect]
     Active Substance: ADALIMUMAB
     Route: 058
  169. ARAVA [Suspect]
     Active Substance: LEFLUNOMIDE
     Indication: Rheumatoid arthritis
     Route: 048
  170. ARAVA [Suspect]
     Active Substance: LEFLUNOMIDE
     Route: 048
  171. AIMOVIG [Suspect]
     Active Substance: ERENUMAB-AOOE
     Indication: Migraine
     Dosage: UNK (SOLUTION)
     Route: 065
  172. AIMOVIG [Suspect]
     Active Substance: ERENUMAB-AOOE
     Dosage: UNK (SOLUTION)
     Route: 065
  173. AIMOVIG [Suspect]
     Active Substance: ERENUMAB-AOOE
     Dosage: UNK (SOLUTION)
     Route: 065
  174. AIMOVIG [Suspect]
     Active Substance: ERENUMAB-AOOE
     Dosage: UNK (SOLUTION)
     Route: 065
  175. COSENTYX [Suspect]
     Active Substance: SECUKINUMAB
     Indication: Psoriatic arthropathy
     Route: 065
  176. BUTRANS [Suspect]
     Active Substance: BUPRENORPHINE
     Indication: Product used for unknown indication
     Route: 065
  177. BUTRANS [Suspect]
     Active Substance: BUPRENORPHINE
     Route: 065
  178. LEFLUNOMIDE [Suspect]
     Active Substance: LEFLUNOMIDE
     Indication: Rheumatoid arthritis
     Route: 065
  179. LEFLUNOMIDE [Suspect]
     Active Substance: LEFLUNOMIDE
     Route: 065
  180. LEFLUNOMIDE [Suspect]
     Active Substance: LEFLUNOMIDE
     Route: 065
  181. LEFLUNOMIDE [Suspect]
     Active Substance: LEFLUNOMIDE
     Route: 065
  182. ENBREL [Suspect]
     Active Substance: ETANERCEPT
     Indication: Rheumatoid arthritis
     Route: 065
  183. ENBREL [Suspect]
     Active Substance: ETANERCEPT
     Route: 065
  184. ENBREL [Suspect]
     Active Substance: ETANERCEPT
     Route: 065
  185. ENBREL [Suspect]
     Active Substance: ETANERCEPT
     Route: 065
  186. ENBREL [Suspect]
     Active Substance: ETANERCEPT
     Route: 065
  187. MYRBETRIQ [Suspect]
     Active Substance: MIRABEGRON
     Indication: Product used for unknown indication
     Route: 065
  188. MYRBETRIQ [Suspect]
     Active Substance: MIRABEGRON
     Route: 065
  189. CALTRATE [Suspect]
     Active Substance: CALCIUM CARBONATE
     Indication: Product used for unknown indication
     Route: 065
  190. MINOCYCLINE [Suspect]
     Active Substance: MINOCYCLINE HYDROCHLORIDE
     Indication: Product used for unknown indication
     Route: 065
  191. RITUXIMAB [Suspect]
     Active Substance: RITUXIMAB
     Indication: Rheumatoid arthritis
     Route: 065
  192. RITUXIMAB [Suspect]
     Active Substance: RITUXIMAB
     Route: 042
  193. RITUXIMAB [Suspect]
     Active Substance: RITUXIMAB
     Route: 058
  194. RITUXIMAB [Suspect]
     Active Substance: RITUXIMAB
     Route: 065
  195. RITUXIMAB [Suspect]
     Active Substance: RITUXIMAB
     Route: 043
  196. RITUXIMAB [Suspect]
     Active Substance: RITUXIMAB
     Route: 042
  197. RITUXIMAB [Suspect]
     Active Substance: RITUXIMAB
     Route: 042
  198. RITUXIMAB [Suspect]
     Active Substance: RITUXIMAB
     Route: 065
  199. ZINC [Suspect]
     Active Substance: ZINC
     Indication: Rheumatoid arthritis
     Route: 065
  200. RANITIDINE [Suspect]
     Active Substance: RANITIDINE
     Indication: Product used for unknown indication
     Route: 065
  201. SULFASALAZINE [Suspect]
     Active Substance: SULFASALAZINE
     Indication: Rheumatoid arthritis
     Route: 065
  202. GOLD SODIUM THIOMALATE [Suspect]
     Active Substance: GOLD SODIUM THIOMALATE
     Indication: Rheumatoid arthritis
     Route: 065
  203. GOLD SODIUM THIOMALATE [Suspect]
     Active Substance: GOLD SODIUM THIOMALATE
     Route: 065
  204. METHYLPREDNISOLONE SODIUM SUCCINATE [Suspect]
     Active Substance: METHYLPREDNISOLONE SODIUM SUCCINATE
     Indication: Product used for unknown indication
     Route: 065
  205. FLUMETHASONE [Suspect]
     Active Substance: FLUMETHASONE
     Indication: Product used for unknown indication
     Route: 065
  206. THIAMINE HYDROCHLORIDE [Suspect]
     Active Substance: THIAMINE HYDROCHLORIDE
     Indication: Product used for unknown indication
     Route: 065
  207. OXYCODONE TEREPHTHALATE [Suspect]
     Active Substance: OXYCODONE TEREPHTHALATE
     Indication: Product used for unknown indication
     Route: 065
  208. DESOXIMETASONE [Suspect]
     Active Substance: DESOXIMETASONE
     Indication: Rheumatoid arthritis
     Route: 058
  209. DESOXIMETASONE [Suspect]
     Active Substance: DESOXIMETASONE
     Route: 048
  210. DESOXIMETASONE [Suspect]
     Active Substance: DESOXIMETASONE
     Route: 003
  211. DESOXIMETASONE [Suspect]
     Active Substance: DESOXIMETASONE
     Route: 058
  212. DESOXIMETASONE [Suspect]
     Active Substance: DESOXIMETASONE
     Route: 048
  213. TOPIRAMATE [Suspect]
     Active Substance: TOPIRAMATE
     Indication: Migraine
     Route: 065
  214. TOPIRAMATE [Suspect]
     Active Substance: TOPIRAMATE
     Route: 065
  215. TOPIRAMATE [Suspect]
     Active Substance: TOPIRAMATE
     Route: 065
  216. TOPIRAMATE [Suspect]
     Active Substance: TOPIRAMATE
     Route: 065
  217. TOPIRAMATE [Suspect]
     Active Substance: TOPIRAMATE
     Route: 065
  218. XELJANZ [Suspect]
     Active Substance: TOFACITINIB CITRATE
     Indication: Rheumatoid arthritis
     Route: 048
  219. XELJANZ [Suspect]
     Active Substance: TOFACITINIB CITRATE
     Route: 065
  220. XELJANZ [Suspect]
     Active Substance: TOFACITINIB CITRATE
     Route: 065
  221. XELJANZ [Suspect]
     Active Substance: TOFACITINIB CITRATE
     Route: 048
  222. XELJANZ [Suspect]
     Active Substance: TOFACITINIB CITRATE
     Route: 065
  223. XELJANZ [Suspect]
     Active Substance: TOFACITINIB CITRATE
     Route: 048
  224. XELJANZ [Suspect]
     Active Substance: TOFACITINIB CITRATE
     Route: 048
  225. NAPROXEN [Suspect]
     Active Substance: NAPROXEN
     Indication: Product used for unknown indication
     Route: 065
  226. NAPROXEN [Suspect]
     Active Substance: NAPROXEN
     Route: 065
  227. BERINERT [Suspect]
     Active Substance: HUMAN C1-ESTERASE INHIBITOR
     Indication: Product used for unknown indication
     Route: 065
  228. BERINERT [Suspect]
     Active Substance: HUMAN C1-ESTERASE INHIBITOR
     Route: 065
  229. NICOTINAMIDE [Suspect]
     Active Substance: NIACINAMIDE
     Indication: Product used for unknown indication
     Route: 065
  230. AZATHIOPRINE [Suspect]
     Active Substance: AZATHIOPRINE
     Indication: Rheumatoid arthritis
     Route: 065
  231. AZATHIOPRINE [Suspect]
     Active Substance: AZATHIOPRINE
     Route: 065
  232. PERIOGARD [Suspect]
     Active Substance: CHLORHEXIDINE GLUCONATE
     Indication: Product used for unknown indication
     Route: 065
  233. MEGLUMINE [Suspect]
     Active Substance: MEGLUMINE
     Indication: Product used for unknown indication
     Route: 065
  234. MEGLUMINE [Suspect]
     Active Substance: MEGLUMINE
     Route: 042
  235. MEGLUMINE [Suspect]
     Active Substance: MEGLUMINE
     Route: 042
  236. MEGLUMINE [Suspect]
     Active Substance: MEGLUMINE
     Route: 042
  237. MYOCHRYSINE [Suspect]
     Active Substance: GOLD SODIUM THIOMALATE
     Indication: Rheumatoid arthritis
     Route: 030
  238. MYOCHRYSINE [Suspect]
     Active Substance: GOLD SODIUM THIOMALATE
     Route: 030
  239. ERELZI [Suspect]
     Active Substance: ETANERCEPT-SZZS
     Indication: Rheumatoid arthritis
     Route: 058
  240. ERELZI [Suspect]
     Active Substance: ETANERCEPT-SZZS
     Route: 058
  241. ERELZI [Suspect]
     Active Substance: ETANERCEPT-SZZS
     Route: 065
  242. STELARA [Suspect]
     Active Substance: USTEKINUMAB
     Indication: Rheumatoid arthritis
     Dosage: UNK (SOLUTION)
     Route: 065
  243. STELARA [Suspect]
     Active Substance: USTEKINUMAB
     Route: 065
  244. STELARA [Suspect]
     Active Substance: USTEKINUMAB
     Route: 065
  245. HYDROCORTISONE [Suspect]
     Active Substance: HYDROCORTISONE
     Indication: Product used for unknown indication
     Route: 065
  246. HYDROXYCHLOROQUINE SULFATE [Suspect]
     Active Substance: HYDROXYCHLOROQUINE SULFATE
     Indication: Rheumatoid arthritis
     Route: 016
  247. HYDROXYCHLOROQUINE SULFATE [Suspect]
     Active Substance: HYDROXYCHLOROQUINE SULFATE
     Route: 065
  248. FOLIC ACID [Suspect]
     Active Substance: FOLIC ACID
     Indication: Rheumatoid arthritis
     Route: 048
  249. FOLIC ACID [Suspect]
     Active Substance: FOLIC ACID
     Route: 065
  250. FOLIC ACID [Suspect]
     Active Substance: FOLIC ACID
     Route: 065
  251. FOLIC ACID [Suspect]
     Active Substance: FOLIC ACID
     Route: 048
  252. FOLIC ACID [Suspect]
     Active Substance: FOLIC ACID
     Route: 048
  253. FOLIC ACID [Suspect]
     Active Substance: FOLIC ACID
     Route: 048
  254. FOLIC ACID [Suspect]
     Active Substance: FOLIC ACID
     Route: 048
  255. FOLIC ACID [Suspect]
     Active Substance: FOLIC ACID
     Route: 048
  256. FOLIC ACID [Suspect]
     Active Substance: FOLIC ACID
     Route: 048
  257. FOLIC ACID [Suspect]
     Active Substance: FOLIC ACID
     Route: 048
  258. FOLIC ACID [Suspect]
     Active Substance: FOLIC ACID
     Route: 048
  259. FOLIC ACID [Suspect]
     Active Substance: FOLIC ACID
     Route: 048
  260. FOLIC ACID [Suspect]
     Active Substance: FOLIC ACID
     Route: 048
  261. FOLIC ACID [Suspect]
     Active Substance: FOLIC ACID
     Route: 058
  262. FOLIC ACID [Suspect]
     Active Substance: FOLIC ACID
     Route: 058
  263. FOLIC ACID [Suspect]
     Active Substance: FOLIC ACID
     Route: 065
  264. FOLIC ACID [Suspect]
     Active Substance: FOLIC ACID
     Route: 065
  265. PSEUDOEPHEDRINE HYDROCHLORIDE [Suspect]
     Active Substance: PSEUDOEPHEDRINE HYDROCHLORIDE
     Indication: Rheumatoid arthritis
     Route: 065
  266. PSEUDOEPHEDRINE HYDROCHLORIDE [Suspect]
     Active Substance: PSEUDOEPHEDRINE HYDROCHLORIDE
     Route: 065
  267. PSEUDOEPHEDRINE HYDROCHLORIDE [Suspect]
     Active Substance: PSEUDOEPHEDRINE HYDROCHLORIDE
     Route: 065
  268. PSEUDOEPHEDRINE HYDROCHLORIDE [Suspect]
     Active Substance: PSEUDOEPHEDRINE HYDROCHLORIDE
     Route: 065
  269. PSEUDOEPHEDRINE HYDROCHLORIDE [Suspect]
     Active Substance: PSEUDOEPHEDRINE HYDROCHLORIDE
     Route: 065

REACTIONS (122)
  - Psoriatic arthropathy [Fatal]
  - Synovitis [Fatal]
  - Peripheral swelling [Fatal]
  - Arthropathy [Fatal]
  - Peripheral venous disease [Fatal]
  - Live birth [Fatal]
  - Rash [Fatal]
  - Condition aggravated [Fatal]
  - Joint swelling [Fatal]
  - Abdominal discomfort [Fatal]
  - Sleep disorder [Fatal]
  - Off label use [Fatal]
  - Impaired healing [Fatal]
  - Muscle injury [Fatal]
  - Drug ineffective [Fatal]
  - Headache [Fatal]
  - Insomnia [Fatal]
  - Ill-defined disorder [Fatal]
  - Dizziness [Fatal]
  - Exposure during pregnancy [Fatal]
  - Abdominal pain upper [Fatal]
  - Musculoskeletal stiffness [Fatal]
  - Gait inability [Fatal]
  - Therapeutic product effect decreased [Fatal]
  - Helicobacter infection [Fatal]
  - Lung disorder [Fatal]
  - Muscle spasms [Fatal]
  - Bursitis [Fatal]
  - Onychomadesis [Fatal]
  - Anti-cyclic citrullinated peptide antibody positive [Fatal]
  - Muscular weakness [Fatal]
  - Joint range of motion decreased [Fatal]
  - Coeliac disease [Fatal]
  - Dry mouth [Fatal]
  - Hepatic enzyme increased [Fatal]
  - Fatigue [Fatal]
  - C-reactive protein increased [Fatal]
  - Drug intolerance [Fatal]
  - Osteoarthritis [Fatal]
  - Memory impairment [Fatal]
  - Product quality issue [Fatal]
  - Mobility decreased [Fatal]
  - Irritable bowel syndrome [Fatal]
  - Liver injury [Fatal]
  - Liver function test increased [Fatal]
  - Inflammation [Fatal]
  - Pneumonia [Fatal]
  - Asthenia [Fatal]
  - Adverse reaction [Fatal]
  - Dyspepsia [Fatal]
  - Blepharospasm [Fatal]
  - Infusion related reaction [Fatal]
  - Weight increased [Fatal]
  - Glossodynia [Fatal]
  - Maternal exposure during pregnancy [Fatal]
  - Folliculitis [Fatal]
  - Vomiting [Fatal]
  - Hepatitis [Fatal]
  - Taste disorder [Fatal]
  - Hand deformity [Fatal]
  - Lower respiratory tract infection [Fatal]
  - Hypercholesterolaemia [Fatal]
  - Finger deformity [Fatal]
  - Wound [Fatal]
  - Wound infection [Fatal]
  - Drug-induced liver injury [Fatal]
  - C-reactive protein abnormal [Fatal]
  - Migraine [Fatal]
  - Gastrooesophageal reflux disease [Fatal]
  - Gastrointestinal disorder [Fatal]
  - Urticaria [Fatal]
  - Nausea [Fatal]
  - Fibromyalgia [Fatal]
  - Musculoskeletal pain [Fatal]
  - Stomatitis [Fatal]
  - Contraindicated product administered [Fatal]
  - Nasopharyngitis [Fatal]
  - Paraesthesia [Fatal]
  - Product label confusion [Fatal]
  - Fall [Fatal]
  - Treatment failure [Fatal]
  - Injection site reaction [Fatal]
  - Diarrhoea [Fatal]
  - Grip strength decreased [Fatal]
  - Intentional product use issue [Fatal]
  - Systemic lupus erythematosus [Fatal]
  - Blister [Fatal]
  - Product use in unapproved indication [Fatal]
  - Hypertension [Fatal]
  - Pemphigus [Fatal]
  - Obesity [Fatal]
  - Malaise [Fatal]
  - Rheumatic fever [Fatal]
  - Arthralgia [Fatal]
  - Duodenal ulcer perforation [Fatal]
  - Hypersensitivity [Fatal]
  - Facet joint syndrome [Fatal]
  - Confusional state [Fatal]
  - Injury [Fatal]
  - Breast cancer stage III [Fatal]
  - Pain [Fatal]
  - Nail disorder [Fatal]
  - Blood cholesterol increased [Fatal]
  - Wheezing [Fatal]
  - Depression [Fatal]
  - Pericarditis [Fatal]
  - Abdominal distension [Fatal]
  - Neck pain [Fatal]
  - Rheumatoid arthritis [Fatal]
  - Night sweats [Fatal]
  - General physical health deterioration [Fatal]
  - Lip dry [Fatal]
  - Pain in extremity [Fatal]
  - Epilepsy [Fatal]
  - Alopecia [Fatal]
  - Dyspnoea [Fatal]
  - Drug hypersensitivity [Fatal]
  - Hypoaesthesia [Fatal]
  - Back injury [Fatal]
  - Onychomycosis [Fatal]
  - Swelling [Fatal]
  - Type 2 diabetes mellitus [Fatal]
